FAERS Safety Report 10595227 (Version 1)
Quarter: 2014Q4

REPORT INFORMATION
  Report Type: Spontaneous
  Country: DE (occurrence: DE)
  Receive Date: 20141120
  Receipt Date: 20141120
  Transmission Date: 20150529
  Serious: Yes (Other)
  Sender: FDA-Public Use
  Company Number: DE-UCBSA-2014018463

PATIENT
  Sex: Female
  Weight: 3.23 kg

DRUGS (1)
  1. KEPPRA [Suspect]
     Active Substance: LEVETIRACETAM
     Indication: EPILEPSY
     Dosage: 1500 MG AT DAILY DOSE
     Route: 064

REACTIONS (3)
  - Muscle strain [Recovered/Resolved]
  - Foetal exposure during pregnancy [Unknown]
  - Hypertonia neonatal [Recovered/Resolved]
